FAERS Safety Report 9649668 (Version 5)
Quarter: 2014Q1

REPORT INFORMATION
  Report Type: Spontaneous
  Country: US (occurrence: US)
  Receive Date: 20131028
  Receipt Date: 20140205
  Transmission Date: 20141002
  Serious: Yes (Hospitalization, Other)
  Sender: FDA-Public Use
  Company Number: US-009507513-1201USA03446

PATIENT
  Sex: Female
  Weight: 77.2 kg

DRUGS (3)
  1. FOSAMAX [Suspect]
     Indication: OSTEOPOROSIS
     Dosage: 70 MG, UNK
     Route: 048
     Dates: start: 20030716
  2. FOSAMAX [Suspect]
     Indication: OSTEOPOROSIS
     Dosage: 70 MG, UNK
     Route: 048
     Dates: start: 20080910, end: 20100830
  3. ALENDRONATE SODIUM [Suspect]
     Indication: OSTEOPOROSIS
     Dosage: 70 MG, UNK
     Route: 048
     Dates: start: 20080910, end: 20100830

REACTIONS (50)
  - Femur fracture [Recovering/Resolving]
  - Intramedullary rod insertion [Recovering/Resolving]
  - Femur fracture [Recovering/Resolving]
  - Intramedullary rod insertion [Recovering/Resolving]
  - Shoulder arthroplasty [Unknown]
  - Shoulder arthroplasty [Unknown]
  - Squamous cell carcinoma [Unknown]
  - Surgery [Unknown]
  - Humerus fracture [Unknown]
  - Cerebral infarction [Unknown]
  - Depression [Unknown]
  - Anxiety [Unknown]
  - Low turnover osteopathy [Unknown]
  - Adverse event [Unknown]
  - Hyperlipidaemia [Unknown]
  - Hypertension [Unknown]
  - Stress fracture [Unknown]
  - Adverse drug reaction [Unknown]
  - Haemorrhagic anaemia [Recovering/Resolving]
  - Malnutrition [Unknown]
  - Accident at home [Unknown]
  - Fall [Unknown]
  - Contusion [Unknown]
  - Contusion [Unknown]
  - Visual acuity reduced [Unknown]
  - Gastrointestinal motility disorder [Unknown]
  - Arthritis [Unknown]
  - Arthritis [Unknown]
  - Arthritis [Unknown]
  - Swelling [Unknown]
  - Pain [Unknown]
  - Circulatory collapse [Unknown]
  - Syncope [Unknown]
  - Type 2 diabetes mellitus [Unknown]
  - Lumbar radiculopathy [Unknown]
  - Osteoarthritis [Unknown]
  - Spinal osteoarthritis [Unknown]
  - Intervertebral disc protrusion [Unknown]
  - Diabetic neuropathy [Unknown]
  - Cerebral small vessel ischaemic disease [Unknown]
  - Amnesia [Unknown]
  - Transient ischaemic attack [Unknown]
  - Rosacea [Unknown]
  - Vertigo positional [Unknown]
  - Limb operation [Unknown]
  - Arthropathy [Unknown]
  - Adverse event [Unknown]
  - Fall [Unknown]
  - Arthralgia [Unknown]
  - Gastrooesophageal reflux disease [Unknown]
